FAERS Safety Report 25135010 (Version 2)
Quarter: 2025Q2

REPORT INFORMATION
  Report Type: Spontaneous
  Country: US (occurrence: US)
  Receive Date: 20250328
  Receipt Date: 20250506
  Transmission Date: 20250717
  Serious: No
  Sender: TAKEDA
  Company Number: US-TAKEDA-2025TUS030233

PATIENT
  Sex: Female
  Weight: 58 kg

DRUGS (1)
  1. VYVANSE [Suspect]
     Active Substance: LISDEXAMFETAMINE DIMESYLATE
     Indication: Attention deficit hyperactivity disorder
     Dosage: 50 MILLIGRAM, QD
     Dates: start: 2002

REACTIONS (4)
  - Drug ineffective [Unknown]
  - Product availability issue [Unknown]
  - Suspected counterfeit product [Unknown]
  - Physical product label issue [Unknown]
